FAERS Safety Report 20945644 (Version 2)
Quarter: 2022Q2

REPORT INFORMATION
  Report Type: Report from Study
  Country: AE (occurrence: AE)
  Receive Date: 20220610
  Receipt Date: 20220629
  Transmission Date: 20220720
  Serious: Yes (Hospitalization, Other)
  Sender: FDA-Public Use
  Company Number: AE-TAKEDA-2022TUS036500

PATIENT
  Age: 34 Year
  Sex: Male

DRUGS (1)
  1. VEDOLIZUMAB [Suspect]
     Active Substance: VEDOLIZUMAB
     Indication: Crohn^s disease
     Dosage: 300 MILLIGRAM
     Route: 042
     Dates: start: 20220528

REACTIONS (4)
  - Gastrointestinal perforation [Unknown]
  - Sepsis [Unknown]
  - Gastrointestinal inflammation [Unknown]
  - Abdominal pain upper [Unknown]
